FAERS Safety Report 8326171-2 (Version None)
Quarter: 2012Q2

REPORT INFORMATION
  Report Type: 
  Country: None (occurrence: None)
  Receive Date: 20120501
  Receipt Date: 20120424
  Transmission Date: 20120825
  Serious: Yes (Death, Other)
  Sender: FDA-Public Use
  Company Number: GB-BRISTOL-MYERS SQUIBB COMPANY-16543928

PATIENT
  Age: 61 Year
  Sex: Female

DRUGS (11)
  1. ATENOLOL AND CHLORTHALIDONE [Suspect]
     Indication: ISCHAEMIC STROKE
     Route: 048
     Dates: start: 20120314, end: 20120317
  2. FLUCLOXACILLIN [Concomitant]
     Indication: EXTERNAL EAR CELLULITIS
  3. ASPIRIN [Suspect]
     Indication: ISCHAEMIC STROKE
  4. METFORMIN HCL [Suspect]
  5. AMLODIPINE [Concomitant]
  6. FUROSEMIDE [Concomitant]
  7. HUMULIN R [Concomitant]
  8. SPIRONOLACTONE [Concomitant]
  9. PIPERACILLIN AND TAZOBACTAM [Suspect]
     Indication: PNEUMONIA ASPIRATION
  10. ISOSORBIDE MONONITRATE [Concomitant]
  11. METRONIDAZOLE [Suspect]
     Indication: PNEUMONIA ASPIRATION

REACTIONS (5)
  - RENAL IMPAIRMENT [None]
  - PNEUMONIA ASPIRATION [None]
  - TOXIC EPIDERMAL NECROLYSIS [None]
  - SKIN EXFOLIATION [None]
  - RASH [None]
